FAERS Safety Report 17142352 (Version 1)
Quarter: 2019Q4

REPORT INFORMATION
  Report Type: Spontaneous
  Country: US (occurrence: US)
  Receive Date: 20191211
  Receipt Date: 20191211
  Transmission Date: 20200122
  Serious: Yes (Other)
  Sender: FDA-Public Use
  Company Number: US-AMNEAL PHARMACEUTICALS-2019-AMRX-02862

PATIENT
  Age: 79 Year
  Sex: Female

DRUGS (3)
  1. PRILOSEC [Concomitant]
     Active Substance: OMEPRAZOLE MAGNESIUM
     Indication: GASTROOESOPHAGEAL REFLUX DISEASE
     Dosage: 40 MILLIGRAM, AS NEEDED
     Route: 065
  2. DICLOFENAC SODIUM. [Suspect]
     Active Substance: DICLOFENAC SODIUM
     Indication: MUSCLE SPASMS
     Dosage: UNK UNK, BID
     Route: 061
     Dates: start: 2019, end: 201911
  3. VERAPAMIL [Concomitant]
     Active Substance: VERAPAMIL HYDROCHLORIDE
     Indication: BLOOD PRESSURE ABNORMAL
     Dosage: UNK UNK, QD
     Route: 065

REACTIONS (6)
  - Epistaxis [Recovered/Resolved]
  - Renal cyst [Not Recovered/Not Resolved]
  - Dyspnoea [Unknown]
  - Spinal synovial cyst [Not Recovered/Not Resolved]
  - Choking [Unknown]
  - Heart valve incompetence [Not Recovered/Not Resolved]
